FAERS Safety Report 15149269 (Version 1)
Quarter: 2018Q3

REPORT INFORMATION
  Report Type: Spontaneous
  Country: US (occurrence: US)
  Receive Date: 20180716
  Receipt Date: 20180716
  Transmission Date: 20181010
  Serious: No
  Sender: FDA-Public Use
  Company Number: US-FOUNDATIONCONSUMERHC-2018-US-010416

PATIENT
  Sex: Female

DRUGS (2)
  1. LEVONORGESTREL (UNSPECIFIED) [Suspect]
     Active Substance: LEVONORGESTREL
     Dates: start: 2017, end: 2017
  2. LEVONORGESTREL (UNSPECIFIED) [Suspect]
     Active Substance: LEVONORGESTREL
     Dosage: 1.5MG
     Route: 048
     Dates: start: 2017, end: 2017

REACTIONS (2)
  - Skin sensitisation [Unknown]
  - Rash [Unknown]

NARRATIVE: CASE EVENT DATE: 2017
